FAERS Safety Report 21091801 (Version 1)
Quarter: 2022Q3

REPORT INFORMATION
  Report Type: Other
  Country: DE (occurrence: None)
  Receive Date: 20220717
  Receipt Date: 20220717
  Transmission Date: 20221026
  Serious: No
  Sender: FDA-Public Use
  Company Number: DE-ROCHE-3138496

PATIENT
  Age: 44 Year
  Sex: Male
  Weight: 70 kg

DRUGS (20)
  1. OCRELIZUMAB [Suspect]
     Active Substance: OCRELIZUMAB
     Indication: Relapsing multiple sclerosis
     Route: 042
     Dates: start: 20180830, end: 20180911
  2. OCRELIZUMAB [Suspect]
     Active Substance: OCRELIZUMAB
     Route: 042
     Dates: start: 20190517
  3. PREDNISOLONE [Concomitant]
     Active Substance: PREDNISOLONE
     Indication: Prophylaxis
     Route: 042
     Dates: start: 20190517, end: 20190517
  4. PREDNISOLONE [Concomitant]
     Active Substance: PREDNISOLONE
     Indication: Prophylaxis
     Route: 042
     Dates: start: 20180911, end: 20180911
  5. PREDNISOLONE [Concomitant]
     Active Substance: PREDNISOLONE
     Indication: Prophylaxis
     Route: 042
     Dates: start: 20180830, end: 20180830
  6. PFIZER-BIONTECH COVID-19 VACCINE [Concomitant]
     Active Substance: TOZINAMERAN
     Indication: COVID-19 prophylaxis
     Route: 030
     Dates: start: 20210511, end: 20210511
  7. PFIZER-BIONTECH COVID-19 VACCINE [Concomitant]
     Active Substance: TOZINAMERAN
     Route: 030
     Dates: start: 20210420, end: 20210420
  8. RANITIDINE HYDROCHLORIDE [Concomitant]
     Active Substance: RANITIDINE HYDROCHLORIDE
     Indication: Prophylaxis
     Route: 048
     Dates: start: 20180910, end: 20180912
  9. RANITIDINE HYDROCHLORIDE [Concomitant]
     Active Substance: RANITIDINE HYDROCHLORIDE
     Route: 048
     Dates: start: 20180829, end: 20180831
  10. RANITIDINE HYDROCHLORIDE [Concomitant]
     Active Substance: RANITIDINE HYDROCHLORIDE
     Route: 048
     Dates: start: 20190516, end: 20190518
  11. NABIXIMOLS [Concomitant]
     Active Substance: NABIXIMOLS
     Indication: Muscle spasticity
     Dates: start: 201910, end: 202109
  12. EBASTINE [Concomitant]
     Active Substance: EBASTINE
     Indication: Prophylaxis
     Route: 048
     Dates: start: 20180910, end: 20180912
  13. EBASTINE [Concomitant]
     Active Substance: EBASTINE
     Route: 048
     Dates: start: 20180829, end: 20180831
  14. EBASTINE [Concomitant]
     Active Substance: EBASTINE
     Route: 048
     Dates: start: 20190516, end: 20190518
  15. CHOLECALCIFEROL [Concomitant]
     Active Substance: CHOLECALCIFEROL
     Indication: Prophylaxis
     Route: 048
     Dates: start: 20140120
  16. LAMOTRIGINE [Concomitant]
     Active Substance: LAMOTRIGINE
     Indication: Muscle spasticity
     Route: 048
     Dates: start: 2015
  17. BACLOFEN [Concomitant]
     Active Substance: BACLOFEN
     Indication: Muscle spasticity
     Dates: end: 201910
  18. TIZANIDINE HYDROCHLORIDE [Concomitant]
     Active Substance: TIZANIDINE HYDROCHLORIDE
     Indication: Muscle spasticity
     Route: 048
     Dates: start: 20211208
  19. TIZANIDINE [Concomitant]
     Active Substance: TIZANIDINE
     Indication: Muscle spasticity
     Route: 048
     Dates: start: 2015, end: 201910
  20. TIZANIDINE [Concomitant]
     Active Substance: TIZANIDINE
     Route: 048
     Dates: start: 2015, end: 20190509

REACTIONS (2)
  - COVID-19 [Recovered/Resolved]
  - Head injury [Unknown]

NARRATIVE: CASE EVENT DATE: 20220401
